FAERS Safety Report 11390451 (Version 1)
Quarter: 2015Q3

REPORT INFORMATION
  Report Type: Spontaneous
  Country: US (occurrence: US)
  Receive Date: 20150818
  Receipt Date: 20150818
  Transmission Date: 20151125
  Serious: No
  Sender: FDA-Public Use
  Company Number: US-ROCHE-1241852

PATIENT
  Sex: Female

DRUGS (4)
  1. PEGASYS [Suspect]
     Active Substance: PEGINTERFERON ALFA-2A
     Indication: CHRONIC HEPATITIS C
     Route: 058
     Dates: start: 20130617
  2. RISPERDAL [Concomitant]
     Active Substance: RISPERIDONE
     Indication: DEPRESSION
  3. VICTRELIS [Suspect]
     Active Substance: BOCEPREVIR
     Indication: CHRONIC HEPATITIS C
     Route: 065
     Dates: start: 20130715
  4. RIBASPHERE [Suspect]
     Active Substance: RIBAVIRIN
     Indication: CHRONIC HEPATITIS C
     Dosage: DIVIDED DOSES 600/400
     Route: 048
     Dates: start: 20130617

REACTIONS (11)
  - Dry skin [Unknown]
  - Pyrexia [Unknown]
  - Muscle spasms [Unknown]
  - Pruritus [Unknown]
  - Nausea [Unknown]
  - Injection site rash [Unknown]
  - Vomiting [Unknown]
  - Weight decreased [Unknown]
  - Irritability [Unknown]
  - Hot flush [Unknown]
  - Feeding disorder [Unknown]
